FAERS Safety Report 6202188-9 (Version None)
Quarter: 2009Q2

REPORT INFORMATION
  Report Type: 
  Country: None (occurrence: None)
  Receive Date: 20090526
  Receipt Date: 20090519
  Transmission Date: 20091009
  Serious: Yes (Hospitalization)
  Sender: FDA-Public Use
  Company Number: US-PFIZER INC-2005096130

PATIENT
  Sex: Male

DRUGS (10)
  1. MARAVIROC [Suspect]
     Indication: HIV TEST POSITIVE
     Dosage: UNK
     Route: 048
     Dates: start: 20050503, end: 20050705
  2. PENTAMIDINE ISETHIONATE [Concomitant]
  3. VICODIN [Concomitant]
     Indication: PAIN
  4. NEURONTIN [Concomitant]
     Indication: PAIN
  5. NORTRIPTYLINE HCL [Concomitant]
     Indication: INSOMNIA
  6. MORPHINE [Concomitant]
     Indication: PAIN
  7. MEPRON [Concomitant]
     Indication: ANTIFUNGAL PROPHYLAXIS
  8. BISACODYL [Concomitant]
     Indication: CONSTIPATION
     Dates: start: 20050518
  9. SENNA [Concomitant]
     Indication: CONSTIPATION
     Dates: start: 20050518
  10. ANDROGEL [Concomitant]
     Indication: CACHEXIA
     Dates: start: 20050601

REACTIONS (1)
  - HYPOGLYCAEMIA [None]
